FAERS Safety Report 13869885 (Version 1)
Quarter: 2017Q3

REPORT INFORMATION
  Report Type: Spontaneous
  Country: US (occurrence: US)
  Receive Date: 20170815
  Receipt Date: 20170815
  Transmission Date: 20171127
  Serious: Yes (Hospitalization)
  Sender: FDA-Public Use
  Company Number: US-IPSEN BIOPHARMACEUTICALS, INC.-2017-07064

PATIENT
  Age: 71 Year
  Sex: Female
  Weight: 55 kg

DRUGS (8)
  1. MAGNESIUM OXIDE. [Concomitant]
     Active Substance: MAGNESIUM OXIDE
  2. SOMATULINE AUTOGEL 120MG [Suspect]
     Active Substance: LANREOTIDE ACETATE
     Indication: NEUROENDOCRINE CARCINOMA METASTATIC
     Dosage: 120 MG
     Route: 058
     Dates: start: 20170512
  3. VITAMIN C [Concomitant]
     Active Substance: ASCORBIC ACID
  4. GABAPENTIN. [Concomitant]
     Active Substance: GABAPENTIN
  5. PRAMIPEXOL [Concomitant]
     Active Substance: PRAMIPEXOLE
  6. ASPIRIN. [Concomitant]
     Active Substance: ASPIRIN
  7. CALCIUM AND VITAMIN D [Concomitant]
     Active Substance: CALCIUM\VITAMIN D
  8. ACYCLOVIR. [Concomitant]
     Active Substance: ACYCLOVIR

REACTIONS (3)
  - Chest pain [Recovered/Resolved]
  - Chest pain [Recovered/Resolved]
  - Anxiety [Unknown]

NARRATIVE: CASE EVENT DATE: 201705
